FAERS Safety Report 14254465 (Version 1)
Quarter: 2017Q4

REPORT INFORMATION
  Report Type: Spontaneous
  Country: US (occurrence: US)
  Receive Date: 20171205
  Receipt Date: 20171205
  Transmission Date: 20180321
  Serious: Yes (Other)
  Sender: FDA-Public Use
  Company Number: US-BRISTOL-MYERS SQUIBB COMPANY-BMS-2017-106720

PATIENT
  Sex: Male
  Weight: 106.58 kg

DRUGS (2)
  1. COUMADIN [Suspect]
     Active Substance: WARFARIN SODIUM
     Indication: ANGIOPLASTY
     Route: 065
  2. COUMADIN [Suspect]
     Active Substance: WARFARIN SODIUM
     Indication: STENT PLACEMENT
     Dosage: UNK
     Route: 048
     Dates: start: 2001, end: 201305

REACTIONS (1)
  - Cardiac disorder [Unknown]
